FAERS Safety Report 9251928 (Version 1)
Quarter: 2013Q1

REPORT INFORMATION
  Report Type: Spontaneous
  Country: US (occurrence: None)
  Receive Date: 20130305
  Receipt Date: 20130305
  Transmission Date: 20140127
  Serious: Yes (Hospitalization, Other)
  Sender: FDA-Public Use
  Company Number: 163-21880-12090796

PATIENT
  Age: 82 Year
  Sex: Female
  Weight: 67.59 kg

DRUGS (4)
  1. REVLIMID [Suspect]
     Indication: MYELODYSPLASTIC SYNDROME
     Route: 048
     Dates: start: 201207
  2. REVLIMID [Suspect]
     Indication: ACUTE MYELOID LEUKAEMIA
     Route: 048
     Dates: start: 201207
  3. ASA (ACETYLSALICYLIC ACID) (UNKNOWN) [Concomitant]
  4. PLAVIX (CLOPIDOGREL SULFATE) (UNKNOWN) [Concomitant]

REACTIONS (9)
  - Thrombocytopenia [None]
  - Anaemia [None]
  - Acute myeloid leukaemia [None]
  - Myelodysplastic syndrome transformation [None]
  - Leukocytosis [None]
  - Fatigue [None]
  - Dizziness [None]
  - Asthenia [None]
  - Muscular weakness [None]
